FAERS Safety Report 12495742 (Version 2)
Quarter: 2016Q2

REPORT INFORMATION
  Report Type: Spontaneous
  Country: MX (occurrence: MX)
  Receive Date: 20160624
  Receipt Date: 20160628
  Transmission Date: 20160815
  Serious: Yes (Other)
  Sender: FDA-Public Use
  Company Number: MX-009507513-1606MEX009874

PATIENT
  Age: 1 Year
  Sex: Female

DRUGS (1)
  1. QUADRIDERM NF [Suspect]
     Active Substance: BETAMETHASONE DIPROPIONATE\CLOTRIMAZOLE\GENTAMICIN SULFATE
     Indication: DERMATITIS
     Dosage: UNK
     Route: 061

REACTIONS (4)
  - Body height below normal [Unknown]
  - Weight decreased [Unknown]
  - Epiphyses premature fusion [Unknown]
  - Product use issue [Unknown]
